FAERS Safety Report 7221450-4 (Version None)
Quarter: 2010Q4

REPORT INFORMATION
  Report Type: 
  Country: None (occurrence: None)
  Receive Date: 20101230
  Receipt Date: 20101202
  Transmission Date: 20110411
  Serious: Yes (Hospitalization)
  Sender: FDA-Public Use
  Company Number: AUR-APL-2010-0287

PATIENT
  Age: 52 Year
  Sex: Female
  Weight: 97.05 kg

DRUGS (7)
  1. METOPROLOL TARTRATE [Suspect]
     Indication: HYPERTENSION
     Dosage: 100MG-QD-ORAL
     Route: 048
     Dates: start: 20100707, end: 20101028
  2. ACCURETIC [Suspect]
     Indication: HYPERTENSION
     Dosage: 1 TABLET - DAILY - ORAL
     Route: 048
     Dates: start: 20070101, end: 20101028
  3. PF-04191834; NAPROXEN;PLACEBO (CODE NOT BROKEN) [Suspect]
     Indication: OSTEOARTHRITIS
     Dosage: BID - ORAL
     Route: 048
     Dates: start: 20101012, end: 20101024
  4. LOPRESSOR [Suspect]
     Indication: HYPERTENSION
     Dosage: 100MG - DAILY - ORAL
     Route: 048
     Dates: start: 20100707, end: 20101028
  5. CLARITIN [Concomitant]
  6. ALAVERT [Concomitant]
  7. LISINOPRIL [Concomitant]

REACTIONS (1)
  - SYNCOPE [None]
